FAERS Safety Report 8934704 (Version 1)
Quarter: 2012Q4

REPORT INFORMATION
  Report Type: 
  Country: CO (occurrence: CO)
  Receive Date: 20121129
  Receipt Date: 20121129
  Transmission Date: 20130627
  Serious: Yes (Other)
  Sender: FDA-Public Use
  Company Number: CO-VERTEX PHARMACEUTICAL INC.-2012-025326

PATIENT
  Age: 16 Year
  Sex: Female
  Weight: 60 kg

DRUGS (1)
  1. INCIVO [Suspect]
     Indication: HEPATITIS C
     Dosage: Dosage Form: Tablet
     Route: 048
     Dates: start: 20121119

REACTIONS (6)
  - Pyrexia [Unknown]
  - Chills [Unknown]
  - Pain in extremity [Unknown]
  - Asthenia [Unknown]
  - Abdominal distension [Unknown]
  - Eructation [Unknown]
